FAERS Safety Report 8120915-0 (Version None)
Quarter: 2012Q1

REPORT INFORMATION
  Report Type: 
  Country: None (occurrence: None)
  Receive Date: 20120208
  Receipt Date: 20120201
  Transmission Date: 20120608
  Serious: Yes (Death)
  Sender: FDA-Public Use
  Company Number: SV-ELI_LILLY_AND_COMPANY-SV201110006966

PATIENT
  Age: 26 Year
  Sex: Male

DRUGS (3)
  1. ZYPREXA [Suspect]
     Indication: SCHIZOPHRENIA, PARANOID TYPE
     Dosage: 10 MG, QD
     Route: 048
     Dates: start: 20110625
  2. ZYPREXA [Suspect]
     Dosage: 5 MG, QD
     Route: 048
     Dates: start: 20110801
  3. MEXAZOLAM [Concomitant]
     Indication: ANXIOLYTIC THERAPY
     Dosage: 0.5 MG, TID
     Dates: start: 20110625

REACTIONS (7)
  - INCREASED APPETITE [None]
  - THINKING ABNORMAL [None]
  - INTENTIONAL DRUG MISUSE [None]
  - FRUSTRATION [None]
  - DRUG INEFFECTIVE [None]
  - COMPLETED SUICIDE [None]
  - HALLUCINATION [None]
